FAERS Safety Report 5869572-4 (Version None)
Quarter: 2008Q3

REPORT INFORMATION
  Report Type: 
  Country: None (occurrence: None)
  Receive Date: 20080904
  Receipt Date: 20080827
  Transmission Date: 20090109
  Serious: No
  Sender: FDA-Public Use
  Company Number: DE-AMGEN-UK298798

PATIENT
  Sex: Male
  Weight: 82 kg

DRUGS (1)
  1. ARANESP [Suspect]
     Indication: RENAL FAILURE CHRONIC
     Route: 042

REACTIONS (4)
  - BALANCE DISORDER [None]
  - DIZZINESS [None]
  - PERSONALITY CHANGE [None]
  - SPEECH DISORDER [None]
